FAERS Safety Report 5766463-4 (Version None)
Quarter: 2008Q2

REPORT INFORMATION
  Report Type: 
  Country: None (occurrence: None)
  Receive Date: 20080606
  Receipt Date: 20080526
  Transmission Date: 20081010
  Serious: Yes (Hospitalization)
  Sender: FDA-Public Use
  Company Number: DSA_31931_2008

PATIENT
  Age: 63 Year
  Sex: Female

DRUGS (10)
  1. ENALAPRIL MALEATE [Suspect]
     Dosage: (550 MG 1X, ORAL)
     Route: 048
     Dates: start: 20080523, end: 20080523
  2. EZETIMIBE [Suspect]
     Dosage: (ORAL)
     Route: 048
     Dates: start: 20080523, end: 20080523
  3. CETIRIZINE HYDROCHLORIDE (CETIRIZINE HYDROCHLORIDE) 10 MG [Suspect]
     Dosage: ORAL
     Route: 048
     Dates: start: 20080523, end: 20080523
  4. DYTIDE H (DYTIDE H - HCTZ/TRIAMTERENE) (NOT SPECIFIED) [Suspect]
     Dosage: ORAL
     Route: 048
     Dates: start: 20080523, end: 20080523
  5. FLUCTIN /00724402/ (FLUCTIN - FLUOXTINE HCL) (NOT SPECIFIED) [Suspect]
     Dosage: ORAL
     Route: 048
     Dates: start: 20080523, end: 20080523
  6. ITRACONAZOLE [Suspect]
     Dosage: ORAL
     Route: 048
     Dates: start: 20080523, end: 20080523
  7. PLANUM /00393701/ (PLANUM - TEMAZEPAM) [Suspect]
     Dosage: (200 MG 1X, ORAL)
     Route: 048
     Dates: start: 20080523, end: 20080523
  8. STILNOX /00914902/ (STILNOX - ZOLPIDEM) [Suspect]
     Dosage: (100 MG 1X, ORAL)
     Route: 048
     Dates: start: 20080523, end: 20080523
  9. TETRAZEPAM (TETRAZEPAM) [Suspect]
     Dosage: ORAL
     Route: 048
     Dates: start: 20080523, end: 20080523
  10. VERAPAMIL [Suspect]
     Dosage: ORAL
     Route: 048
     Dates: start: 20080523, end: 20080523

REACTIONS (3)
  - MULTIPLE DRUG OVERDOSE INTENTIONAL [None]
  - SOMNOLENCE [None]
  - SUICIDE ATTEMPT [None]
